FAERS Safety Report 5947906-X (Version None)
Quarter: 2008Q4

REPORT INFORMATION
  Report Type: 
  Country: None (occurrence: None)
  Receive Date: 20081111
  Receipt Date: 20080912
  Transmission Date: 20090506
  Serious: No
  Sender: FDA-Public Use
  Company Number: A0741997A

PATIENT
  Age: 19 Year
  Sex: Female
  Weight: 43.6 kg

DRUGS (2)
  1. TREXIMET [Suspect]
     Indication: MIGRAINE
     Dosage: 1TAB PER DAY
     Route: 048
     Dates: start: 20080801, end: 20080801
  2. TREXIMET [Suspect]
     Indication: DRUG USE FOR UNKNOWN INDICATION
     Route: 048

REACTIONS (2)
  - RASH [None]
  - URTICARIA [None]
